FAERS Safety Report 5381187-3 (Version None)
Quarter: 2007Q3

REPORT INFORMATION
  Report Type: 
  Country: None (occurrence: None)
  Receive Date: 20070706
  Receipt Date: 20070627
  Transmission Date: 20080115
  Serious: Yes (Disabling)
  Sender: FDA-Public Use
  Company Number: US-MERCK-0704USA04052

PATIENT
  Age: 72 Year
  Sex: Female
  Weight: 89 kg

DRUGS (8)
  1. JANUVIA [Suspect]
     Indication: TYPE 2 DIABETES MELLITUS
     Route: 048
     Dates: start: 20070301
  2. AMANTADINE HYDROCHLORIDE [Suspect]
     Indication: INFLUENZA IMMUNISATION
     Route: 048
  3. AVANDIA [Concomitant]
     Indication: DIABETES MELLITUS
     Route: 048
  4. FOSAMAX PLUS D [Concomitant]
     Indication: OSTEOPOROSIS
     Route: 048
  5. TOPROL-XL [Concomitant]
     Indication: HYPERTENSION
     Route: 048
  6. ZOCOR [Concomitant]
     Indication: HYPERLIPIDAEMIA
     Route: 048
  7. GLYNASE [Concomitant]
     Indication: DIABETES MELLITUS
     Route: 048
  8. MICARDIS [Concomitant]
     Indication: HYPERTENSION
     Route: 048

REACTIONS (1)
  - HALLUCINATION [None]
